FAERS Safety Report 21653873 (Version 2)
Quarter: 2022Q4

REPORT INFORMATION
  Report Type: Spontaneous
  Country: BR (occurrence: BR)
  Receive Date: 20221129
  Receipt Date: 20221212
  Transmission Date: 20230112
  Serious: Yes (Hospitalization)
  Sender: FDA-Public Use
  Company Number: BR-CELLTRION INC.-2022BR019934

PATIENT

DRUGS (1)
  1. INFLIXIMAB [Suspect]
     Active Substance: INFLIXIMAB
     Indication: Crohn^s disease
     Dosage: 5 AMPOULES EVERY 8 WEEKS
     Route: 042
     Dates: start: 20220901

REACTIONS (4)
  - Upper limb fracture [Unknown]
  - Fall [Unknown]
  - Therapy interrupted [Unknown]
  - Intentional dose omission [Unknown]

NARRATIVE: CASE EVENT DATE: 20221105
